FAERS Safety Report 7414337-5 (Version None)
Quarter: 2011Q2

REPORT INFORMATION
  Report Type: 
  Country: None (occurrence: None)
  Receive Date: 20110414
  Receipt Date: 20110413
  Transmission Date: 20111010
  Serious: Yes (Death)
  Sender: FDA-Public Use
  Company Number: US-PFIZER INC-2011075494

PATIENT
  Sex: Female

DRUGS (2)
  1. PROTONIX [Suspect]
     Dosage: UNK
     Route: 065
  2. ALDACTONE [Suspect]
     Dosage: UNK
     Route: 065

REACTIONS (1)
  - DEATH [None]
